FAERS Safety Report 10005033 (Version 2)
Quarter: 2014Q2

REPORT INFORMATION
  Report Type: Spontaneous
  Country: US (occurrence: US)
  Receive Date: 20140312
  Receipt Date: 20140611
  Transmission Date: 20141212
  Serious: No
  Sender: FDA-Public Use
  Company Number: US-INCYTE CORPORATION-2013IN003122

PATIENT
  Age: 64 Year
  Sex: Female

DRUGS (9)
  1. JAKAFI [Suspect]
     Indication: MYELOFIBROSIS
     Dosage: 10 MG, BID
     Route: 048
  2. ANAGRELIDE [Concomitant]
  3. ALLOPURINOL [Concomitant]
  4. COREG [Concomitant]
  5. MULTIVITAMIN                       /00097801/ [Concomitant]
  6. FISH OIL [Concomitant]
  7. FUROSEMIDE [Concomitant]
  8. OMEPRAZOLE [Concomitant]
  9. GABAPENTIN [Concomitant]

REACTIONS (2)
  - Nasopharyngitis [Unknown]
  - Diarrhoea [Unknown]
